FAERS Safety Report 15402607 (Version 1)
Quarter: 2018Q3

REPORT INFORMATION
  Report Type: Spontaneous
  Country: US (occurrence: US)
  Receive Date: 20180919
  Receipt Date: 20180919
  Transmission Date: 20181010
  Serious: Yes (Death, Other)
  Sender: FDA-Public Use
  Company Number: US-PFIZER INC-2018378385

PATIENT
  Sex: Male

DRUGS (1)
  1. GABAPENTIN. [Suspect]
     Active Substance: GABAPENTIN
     Dosage: UNK

REACTIONS (7)
  - Drug dependence [Unknown]
  - Bipolar disorder [Unknown]
  - Schizophrenia [Unknown]
  - Burning sensation [Unknown]
  - Hypervigilance [Unknown]
  - Death [Fatal]
  - Depression [Unknown]
